FAERS Safety Report 12204257 (Version 3)
Quarter: 2016Q3

REPORT INFORMATION
  Report Type: Spontaneous
  Country: GB (occurrence: GB)
  Receive Date: 20160323
  Receipt Date: 20160707
  Transmission Date: 20161109
  Serious: Yes (Life-Threatening, Other)
  Sender: FDA-Public Use
  Company Number: GB-TEVA-645278ACC

PATIENT
  Sex: Female

DRUGS (4)
  1. LAMOTRIGINE. [Suspect]
     Active Substance: LAMOTRIGINE
     Indication: SEIZURE
     Dosage: 200 MILLIGRAM DAILY; 200 MG, QD, 200 MILLIGRAM DAILY;
     Route: 048
  2. LAMICTAL [Suspect]
     Active Substance: LAMOTRIGINE
     Indication: PRODUCT USED FOR UNKNOWN INDICATION
     Route: 048
  3. LAMICTAL [Suspect]
     Active Substance: LAMOTRIGINE
     Route: 048
  4. LAMOTRIGINE. [Suspect]
     Active Substance: LAMOTRIGINE
     Dosage: 150 MILLIGRAM DAILY; 100 MG, UNK, 150 MILLIGRAM DAILY; ONE 100MG TABLET AND HALF 100 MG TABLET
     Route: 048

REACTIONS (8)
  - Headache [Recovered/Resolved]
  - Infection [Recovered/Resolved]
  - Asthma [Recovered/Resolved]
  - Dementia [Unknown]
  - Nasal congestion [Recovered/Resolved]
  - Hypersensitivity [Unknown]
  - Seizure [Recovered/Resolved]
  - Swelling face [Unknown]
